FAERS Safety Report 24985177 (Version 1)
Quarter: 2025Q1

REPORT INFORMATION
  Report Type: Spontaneous
  Country: US (occurrence: US)
  Receive Date: 20250219
  Receipt Date: 20250219
  Transmission Date: 20250408
  Serious: Yes (Other)
  Sender: MYLAN
  Company Number: US-MYLANLABS-2025M1013049

PATIENT
  Age: 29 Year
  Sex: Female

DRUGS (4)
  1. ESTRADIOL [Suspect]
     Active Substance: ESTRADIOL
     Indication: Hormone therapy
     Dosage: 2 MILLIGRAM, BID
     Route: 065
  2. PROGESTERONE [Suspect]
     Active Substance: PROGESTERONE
     Indication: Hormone therapy
     Dosage: 75 MILLIGRAM, QD
     Route: 030
  3. ECULIZUMAB [Suspect]
     Active Substance: ECULIZUMAB
     Indication: Atypical haemolytic uraemic syndrome
     Dosage: 900 MILLIGRAM, QW
     Route: 042
  4. ECULIZUMAB [Suspect]
     Active Substance: ECULIZUMAB
     Dosage: 1800 MILLIGRAM, Q2W
     Route: 042

REACTIONS (3)
  - Thrombotic microangiopathy [Unknown]
  - Atypical haemolytic uraemic syndrome [Unknown]
  - Maternal exposure during pregnancy [Unknown]
